FAERS Safety Report 17582053 (Version 1)
Quarter: 2020Q1

REPORT INFORMATION
  Report Type: Spontaneous
  Country: US (occurrence: US)
  Receive Date: 20200325
  Receipt Date: 20200325
  Transmission Date: 20200409
  Serious: Yes (Death)
  Sender: FDA-Public Use
  Company Number: None

PATIENT
  Age: 78 Year
  Sex: Female
  Weight: 94 kg

DRUGS (19)
  1. HYDROXYCHLOROQUINE 200 MG BID [Concomitant]
     Active Substance: HYDROXYCHLOROQUINE
     Dates: start: 20181015, end: 20200120
  2. LEVOTHYROXINE 50 MCG [Concomitant]
     Active Substance: LEVOTHYROXINE
     Dates: start: 20191020, end: 20200129
  3. VANCOMYCIN [Concomitant]
     Active Substance: VANCOMYCIN
     Dates: start: 20200125, end: 20200127
  4. FENTANYL. [Concomitant]
     Active Substance: FENTANYL
     Dates: start: 20200125, end: 20200128
  5. PREDNISONE 12.5 MG [Concomitant]
     Dates: start: 20190923, end: 20200120
  6. WARFARIN [Concomitant]
     Active Substance: WARFARIN
     Dates: start: 20190626, end: 20200120
  7. CASPOFUNGIN [Concomitant]
     Active Substance: CASPOFUNGIN
     Dates: start: 20200128, end: 20200129
  8. VASOPRESSIN. [Concomitant]
     Active Substance: VASOPRESSIN
     Dates: start: 20200125, end: 20200126
  9. DILTIAZEM 240 MG ER [Concomitant]
     Dates: start: 20191107, end: 20200120
  10. IVIG 70 GM [Concomitant]
     Dates: start: 20200125, end: 20200125
  11. KCENTRA [Concomitant]
     Active Substance: COAGULATION FACTOR IX HUMAN\COAGULATION FACTOR VII HUMAN\COAGULATION FACTOR X HUMAN\PROTEIN C\PROTEIN S HUMAN\PROTHROMBIN
     Dates: start: 20200125, end: 20200125
  12. PHYTONADIONE. [Concomitant]
     Active Substance: PHYTONADIONE
     Dates: start: 20200126, end: 20200126
  13. HYDROCORTISONE. [Concomitant]
     Active Substance: HYDROCORTISONE
     Dates: start: 20200125, end: 20200128
  14. AMIODARONE IV [Concomitant]
     Dates: start: 20200127, end: 20200129
  15. TOCILIZUMAB. [Suspect]
     Active Substance: TOCILIZUMAB
     Indication: RHEUMATOID ARTHRITIS
     Dosage: ?          OTHER FREQUENCY:Q4 WEEKS;?
     Route: 041
     Dates: start: 20200120, end: 20200120
  16. DENOSUMAB [Concomitant]
     Active Substance: DENOSUMAB
     Dates: start: 20140801, end: 20200120
  17. FLECAINIDE 50 MG [Concomitant]
     Active Substance: FLECAINIDE
     Dates: start: 20181015, end: 20200129
  18. CEFEPIME [Concomitant]
     Active Substance: CEFEPIME HYDROCHLORIDE
     Dates: start: 20200125, end: 20200129
  19. NOREPINEPHRINE. [Concomitant]
     Active Substance: NOREPINEPHRINE
     Dates: start: 20200125, end: 20200129

REACTIONS (15)
  - Acute kidney injury [None]
  - Multiple organ dysfunction syndrome [None]
  - Cellulitis [None]
  - Peripheral swelling [None]
  - Necrotising fasciitis [None]
  - Blood culture positive [None]
  - Septic shock [None]
  - Serratia sepsis [None]
  - Limb injury [None]
  - Candida infection [None]
  - Vascular device infection [None]
  - Metapneumovirus infection [None]
  - Thrombocytopenia [None]
  - Clostridium difficile infection [None]
  - Scratch [None]

NARRATIVE: CASE EVENT DATE: 20200125
